FAERS Safety Report 5994201-9 (Version None)
Quarter: 2008Q4

REPORT INFORMATION
  Report Type: 
  Country: None (occurrence: None)
  Receive Date: 20081212
  Receipt Date: 20080902
  Transmission Date: 20090506
  Serious: No
  Sender: FDA-Public Use
  Company Number: US-ABBOTT-08P-163-0474117-00

PATIENT
  Sex: Female
  Weight: 113.5 kg

DRUGS (23)
  1. HUMIRA [Suspect]
     Indication: RHEUMATOID ARTHRITIS
     Route: 058
     Dates: start: 20080201, end: 20080801
  2. ALVARA CREAM [Concomitant]
     Indication: SKIN PAPILLOMA
     Route: 061
     Dates: start: 20080601
  3. PREGABALIN [Concomitant]
     Indication: RHEUMATOID ARTHRITIS
     Dosage: TAKEN FOR YEARS
     Route: 048
  4. VENLAFAXINE HYDROCHLORIDE [Concomitant]
     Indication: DEPRESSION
     Route: 048
     Dates: start: 20020101
  5. ESOMEPRAZOLE MAGNESIUM [Concomitant]
     Indication: GASTROOESOPHAGEAL REFLUX DISEASE
     Route: 048
     Dates: start: 20000101
  6. BUPROPION HCL [Concomitant]
     Indication: DEPRESSION
     Route: 048
     Dates: start: 20080601
  7. FOLIC ACID [Concomitant]
     Indication: VITAMIN SUPPLEMENTATION
     Route: 048
     Dates: start: 20080601
  8. METHOTREXATE [Concomitant]
     Indication: RHEUMATOID ARTHRITIS
     Dosage: 22.5 MG WEEKLY, 2.5 MG 9 PILLS WEEKLY
     Route: 048
     Dates: start: 20080801
  9. METHOTREXATE [Concomitant]
  10. GLYBURIDE [Concomitant]
     Indication: DIABETES MELLITUS
     Route: 048
     Dates: start: 20060101
  11. FLEXERIL [Concomitant]
     Indication: RHEUMATOID ARTHRITIS
     Dosage: DAILY AS NEEDED
     Route: 048
     Dates: start: 19980101
  12. ALPRAZOLAM [Concomitant]
     Indication: DEPRESSION
     Dosage: DAILY AS NEEDED
     Route: 048
     Dates: start: 20020101
  13. CYCLOSPORINE [Concomitant]
     Indication: DRY EYE
     Route: 061
     Dates: start: 20060101
  14. INSULIN BOVINE [Concomitant]
     Indication: DIABETES MELLITUS
     Dosage: AS NEEDED SLIDING SCALE
     Route: 058
     Dates: start: 20060101
  15. INSULIN 50/50 [Concomitant]
     Indication: DIABETES MELLITUS
     Route: 058
     Dates: start: 20080801
  16. PREDNISONE TAB [Concomitant]
     Indication: RHEUMATOID ARTHRITIS
     Route: 048
     Dates: start: 19980101
  17. LORAZEPAM [Concomitant]
     Indication: DEPRESSION
     Route: 048
     Dates: start: 20080601
  18. ROPINIROLE HYDROCHLORIDE [Concomitant]
     Indication: RHEUMATOID ARTHRITIS
     Route: 048
     Dates: start: 20080701
  19. MORPHINE SULFATE [Concomitant]
     Indication: ARTHRALGIA
     Route: 048
     Dates: start: 20050101
  20. ERGOCALCIFEROL [Concomitant]
     Indication: VITAMIN SUPPLEMENTATION
     Route: 048
     Dates: start: 20080801
  21. CALCIUM [Concomitant]
     Indication: MINERAL SUPPLEMENTATION
     Route: 048
     Dates: start: 20080801
  22. SODIUM CHLORIDE [Concomitant]
     Indication: DRY EYE
     Route: 048
     Dates: start: 20060101
  23. HYDROXYCHLOROQUINE SULFATE [Concomitant]
     Indication: DRUG USE FOR UNKNOWN INDICATION

REACTIONS (5)
  - CELLULITIS [None]
  - MOUTH ULCERATION [None]
  - SJOGREN'S SYNDROME [None]
  - SKIN PAPILLOMA [None]
  - VISUAL IMPAIRMENT [None]
